FAERS Safety Report 10377205 (Version 2)
Quarter: 2014Q3

REPORT INFORMATION
  Report Type: Spontaneous
  Country: US (occurrence: US)
  Receive Date: 20140812
  Receipt Date: 20140821
  Transmission Date: 20150326
  Serious: No
  Sender: FDA-Public Use
  Company Number: US-BIOGENIDEC-2014BI079910

PATIENT
  Age: 44 Year
  Sex: Female

DRUGS (2)
  1. AVONEX [Suspect]
     Active Substance: INTERFERON BETA-1A
     Indication: MULTIPLE SCLEROSIS
     Route: 030
     Dates: end: 20140707
  2. AVONEX [Suspect]
     Active Substance: INTERFERON BETA-1A
     Indication: MULTIPLE SCLEROSIS
     Route: 030
     Dates: start: 20130206, end: 20130628

REACTIONS (13)
  - Nervousness [Recovered/Resolved]
  - Gastric disorder [Recovered/Resolved]
  - Insomnia [Recovered/Resolved]
  - Influenza like illness [Recovered/Resolved]
  - Dyspepsia [Recovered/Resolved]
  - Injection site swelling [Recovered/Resolved]
  - Diarrhoea [Recovered/Resolved]
  - Paraesthesia [Unknown]
  - Muscular weakness [Unknown]
  - Hyperchlorhydria [Recovered/Resolved]
  - Anxiety [Recovered/Resolved]
  - Injection site erythema [Recovered/Resolved]
  - Injection site pain [Recovered/Resolved]

NARRATIVE: CASE EVENT DATE: 20130206
